FAERS Safety Report 10314090 (Version 1)
Quarter: 2014Q3

REPORT INFORMATION
  Report Type: Spontaneous
  Country: US (occurrence: US)
  Receive Date: 20140718
  Receipt Date: 20140718
  Transmission Date: 20150326
  Serious: Yes (Other)
  Sender: FDA-Public Use
  Company Number: US-009507513-1407USA006720

PATIENT
  Age: 54 Year
  Sex: Male
  Weight: 98.2 kg

DRUGS (2)
  1. VICTRELIS [Suspect]
     Active Substance: BOCEPREVIR
     Indication: HEPATITIS C
     Dosage: (ALSO REPORTED AS 4 CAPSULES, Q8H)
     Route: 048
     Dates: start: 20121011
  2. REBETOL [Suspect]
     Active Substance: RIBAVIRIN
     Indication: HEPATITIS C
     Dosage: (ALSO REPORTED AS 3 CAPSULES, BID)
     Route: 048
     Dates: start: 20120911

REACTIONS (2)
  - Rash maculo-papular [Unknown]
  - Anaemia [Unknown]

NARRATIVE: CASE EVENT DATE: 20121109
